FAERS Safety Report 5149275-4 (Version None)
Quarter: 2006Q4

REPORT INFORMATION
  Report Type: 
  Country: None (occurrence: None)
  Receive Date: 20061113
  Receipt Date: 20051021
  Transmission Date: 20070319
  Serious: No
  Sender: FDA-Public Use
  Company Number: 422254

PATIENT
  Sex: Male

DRUGS (12)
  1. COREG [Suspect]
     Dosage: 3.125MG TWICE PER DAY
     Route: 048
     Dates: start: 20050701
  2. PLAVIX [Concomitant]
  3. LISINOPRIL [Concomitant]
  4. GLYBURIDE [Concomitant]
  5. AVANDIA [Concomitant]
  6. TRICOR [Concomitant]
  7. GABAPENTIN [Concomitant]
  8. PRAVACHOL [Concomitant]
  9. LASIX [Concomitant]
  10. ALDACTONE [Concomitant]
  11. VITAMINS [Concomitant]
  12. ASPIRIN [Concomitant]

REACTIONS (1)
  - VISUAL DISTURBANCE [None]
